FAERS Safety Report 17264036 (Version 1)
Quarter: 2020Q1

REPORT INFORMATION
  Report Type: Spontaneous
  Country: US (occurrence: US)
  Receive Date: 20200113
  Receipt Date: 20200113
  Transmission Date: 20200409
  Serious: Yes (Disabling)
  Sender: FDA-Public Use
  Company Number: None

PATIENT
  Age: 51 Year
  Sex: Female
  Weight: 57.6 kg

DRUGS (8)
  1. MULTIVITAMIN [Concomitant]
     Active Substance: VITAMINS
  2. COLLOSAN POWDER9HIGH DOSE MAGNESIUM OXIDE) [Concomitant]
  3. CARDIZEM ER [Concomitant]
     Active Substance: DILTIAZEM HYDROCHLORIDE
  4. REMERON [Concomitant]
     Active Substance: MIRTAZAPINE
  5. SEROQUEL [Suspect]
     Active Substance: QUETIAPINE FUMARATE
     Indication: INSOMNIA
     Dosage: ?          QUANTITY:1 TABLET(S);?
     Route: 048
     Dates: start: 20040101
  6. LEVOTHYROXINE. [Concomitant]
     Active Substance: LEVOTHYROXINE
  7. KLONOPIN [Concomitant]
     Active Substance: CLONAZEPAM
  8. CASTER OIL CAPSULE [Concomitant]

REACTIONS (4)
  - Oral pain [None]
  - Tardive dyskinesia [None]
  - Tongue discomfort [None]
  - Burning sensation [None]

NARRATIVE: CASE EVENT DATE: 20180701
